FAERS Safety Report 21459503 (Version 1)
Quarter: 2022Q4

REPORT INFORMATION
  Report Type: Spontaneous
  Country: US (occurrence: None)
  Receive Date: 20221014
  Receipt Date: 20221014
  Transmission Date: 20230113
  Serious: Yes (Hospitalization)
  Sender: FDA-Public Use
  Company Number: None

PATIENT
  Age: 72 Year
  Sex: Female

DRUGS (1)
  1. VENOFER [Suspect]
     Active Substance: IRON SUCROSE
     Indication: Iron deficiency anaemia
     Dosage: FREQUENCY : EVERY OTHER WEEK;?
     Route: 051

REACTIONS (11)
  - Hypoaesthesia [None]
  - Feeling abnormal [None]
  - Hypoaesthesia [None]
  - Paraesthesia [None]
  - Paraesthesia [None]
  - Syncope [None]
  - Dysstasia [None]
  - Seizure [None]
  - Headache [None]
  - Dizziness [None]
  - Incontinence [None]

NARRATIVE: CASE EVENT DATE: 20220317
